FAERS Safety Report 8649473 (Version 2)
Quarter: 2012Q4

REPORT INFORMATION
  Report Type: 
  Country: US (occurrence: US)
  Receive Date: 20120705
  Receipt Date: 20121029
  Transmission Date: 20130627
  Serious: Yes (Other)
  Sender: FDA-Public Use
  Company Number: US-BAYER-2012-064912

PATIENT
  Age: 23 Year
  Sex: Female
  Weight: 86.17 kg

DRUGS (7)
  1. YAZ [Suspect]
     Indication: CONTRACEPTION
     Dosage: UNK
     Dates: start: 200710, end: 201106
  2. YASMIN [Suspect]
     Indication: CONTRACEPTION
     Dosage: UNK
     Dates: start: 200710, end: 201106
  3. OCELLA [Suspect]
     Indication: CONTRACEPTION
     Dosage: UNK
     Dates: start: 200710, end: 201106
  4. MAALOX [Concomitant]
     Indication: STOMACH PAIN
     Dosage: UNK
     Dates: start: 200408
  5. ADVIL [Concomitant]
     Indication: PAIN
     Dosage: UNK
     Dates: start: 200908
  6. ANTIBIOTICS [Concomitant]
  7. VICODIN [Concomitant]

REACTIONS (5)
  - Cholelithiasis [None]
  - Cholecystitis chronic [None]
  - Injury [None]
  - Pain [None]
  - Pain [None]
